FAERS Safety Report 23608040 (Version 1)
Quarter: 2024Q1

REPORT INFORMATION
  Report Type: Spontaneous
  Country: NO (occurrence: NO)
  Receive Date: 20240307
  Receipt Date: 20240307
  Transmission Date: 20240410
  Serious: Yes (Disabling)
  Sender: FDA-Public Use
  Company Number: None

PATIENT
  Age: 12 Year
  Sex: Female
  Weight: 70 kg

DRUGS (2)
  1. LISDEXAMFETAMINE [Suspect]
     Active Substance: LISDEXAMFETAMINE
     Indication: Attention deficit hyperactivity disorder
     Dosage: 40 MG OR 50 MG
     Route: 048
     Dates: start: 2023, end: 2023
  2. RISPERIDONE [Concomitant]
     Active Substance: RISPERIDONE
     Indication: Tourette^s disorder
     Dosage: 0.5 MG MORNING AND 0.5 MG EVENING. SOMETIMES ALSO 0.5 MG MIDDAY. USED AS IN AGREEMENT WITH PHYSIC...
     Route: 065

REACTIONS (6)
  - Anxiety [Recovered/Resolved with Sequelae]
  - Poor school attendance [Unknown]
  - Hyperacusis [Unknown]
  - Fear [Recovered/Resolved with Sequelae]
  - Social problem [Unknown]
  - Product substitution issue [Recovered/Resolved with Sequelae]

NARRATIVE: CASE EVENT DATE: 20230101
